FAERS Safety Report 8119849-7 (Version None)
Quarter: 2012Q1

REPORT INFORMATION
  Report Type: 
  Country: None (occurrence: None)
  Receive Date: 20120206
  Receipt Date: 20120206
  Transmission Date: 20120608
  Serious: Yes (Life-Threatening, Hospitalization, Other)
  Sender: FDA-Public Use
  Company Number: None

PATIENT
  Age: 58 Year
  Sex: Female
  Weight: 51.8008 kg

DRUGS (12)
  1. FERAHEME [Suspect]
     Indication: ANAEMIA
     Dosage: 510 MG ONCE IV ; 510 MG ONCE IV
     Route: 042
     Dates: start: 20111228
  2. FERAHEME [Suspect]
     Indication: ANAEMIA
     Dosage: 510 MG ONCE IV ; 510 MG ONCE IV
     Route: 042
     Dates: start: 20111219
  3. HUMULIN R [Concomitant]
  4. LISINOPRIL AND HYDROCHLOROTHIAZIDE [Concomitant]
  5. NIACIN [Concomitant]
  6. CHOLESTOFF [Concomitant]
  7. HUMALOG [Concomitant]
  8. BYSTOLIC [Concomitant]
  9. FISH OIL [Concomitant]
  10. ASPIRIN [Concomitant]
  11. LEVOTHYROXINE SODIUM [Concomitant]
  12. HYDROCHLOROTHIAZIDE [Concomitant]

REACTIONS (5)
  - HYPOGLYCAEMIC SEIZURE [None]
  - DRUG HYPERSENSITIVITY [None]
  - ABDOMINAL DISCOMFORT [None]
  - DIZZINESS [None]
  - CONSTIPATION [None]
